FAERS Safety Report 5129557-2 (Version None)
Quarter: 2006Q4

REPORT INFORMATION
  Report Type: 
  Country: None (occurrence: None)
  Receive Date: 20061012
  Receipt Date: 20060928
  Transmission Date: 20070319
  Serious: No
  Sender: FDA-Public Use
  Company Number: 2006S1008014

PATIENT
  Age: 43 Year
  Sex: Female

DRUGS (6)
  1. CLOZAPINE [Suspect]
     Indication: DRUG USE FOR UNKNOWN INDICATION
     Dosage: 75 MG; HS; PO
     Route: 048
     Dates: start: 20060710, end: 20060822
  2. CLOZAPINE [Suspect]
     Indication: DRUG USE FOR UNKNOWN INDICATION
     Dosage: 300 MG; HS; PO; SEE IMAGE
     Route: 048
     Dates: end: 20060822
  3. CLOZAPINE [Suspect]
     Indication: DRUG USE FOR UNKNOWN INDICATION
     Dosage: 300 MG; HS; PO; SEE IMAGE
     Route: 048
     Dates: start: 20060710
  4. CLONAZEPAM [Concomitant]
  5. DIPHENHYDRAMINE HCL [Concomitant]
  6. LEVOTHYROXINE SODIUM [Concomitant]

REACTIONS (2)
  - GENERAL PHYSICAL HEALTH DETERIORATION [None]
  - GRANULOCYTOPENIA [None]
